FAERS Safety Report 9375524 (Version 1)
Quarter: 2013Q2

REPORT INFORMATION
  Report Type: Report from Study
  Country: BR (occurrence: BR)
  Receive Date: 20130628
  Receipt Date: 20130628
  Transmission Date: 20140414
  Serious: Yes (Life-Threatening, Hospitalization, Other)
  Sender: FDA-Public Use
  Company Number: PHHY2013BR066704

PATIENT
  Age: 76 Year
  Sex: Male
  Weight: 63 kg

DRUGS (4)
  1. EXELON PATCH [Suspect]
     Indication: DEMENTIA ALZHEIMER^S TYPE
     Dosage: 4.6 MG, DAILY, (9 MG / 5 CM2)
     Route: 062
     Dates: start: 2010
  2. HIDANTAL [Concomitant]
     Indication: CRANIOCEREBRAL INJURY
     Dosage: 3 DF, DAILY
     Route: 048
     Dates: start: 2010
  3. ESPRAN [Concomitant]
     Indication: MOOD ALTERED
     Dosage: 1 DF, DAILY
     Route: 048
     Dates: start: 2010
  4. NATRILIX [Concomitant]
     Indication: HYPERTENSION
     Dosage: 1 DF, DAILY
     Route: 048

REACTIONS (4)
  - Appendicitis [Recovered/Resolved]
  - Gastrointestinal disorder [Unknown]
  - Abdominal pain [Recovering/Resolving]
  - Pain in extremity [Recovered/Resolved]
